FAERS Safety Report 16926240 (Version 1)
Quarter: 2019Q4

REPORT INFORMATION
  Report Type: Report from Study
  Country: None (occurrence: US)
  Receive Date: 20191016
  Receipt Date: 20191016
  Transmission Date: 20200122
  Serious: Yes (Hospitalization)
  Sender: FDA-Public Use
  Company Number: US-ABBVIE-19K-163-2775881-00

PATIENT
  Age: 54 Year
  Sex: Female
  Weight: 61.29 kg

DRUGS (3)
  1. METHOTREXATE. [Interacting]
     Active Substance: METHOTREXATE
     Indication: PRODUCT USED FOR UNKNOWN INDICATION
     Route: 048
     Dates: start: 20190426, end: 20190508
  2. HUMIRA [Suspect]
     Active Substance: ADALIMUMAB
     Indication: PSORIATIC ARTHROPATHY
     Route: 058
     Dates: start: 20190315, end: 201905
  3. HUMIRA [Suspect]
     Active Substance: ADALIMUMAB
     Route: 058
     Dates: start: 201905

REACTIONS (7)
  - Muscular weakness [Recovered/Resolved]
  - Gait inability [Recovered/Resolved]
  - Dizziness [Not Recovered/Not Resolved]
  - Paraesthesia [Recovered/Resolved]
  - Drug interaction [Not Recovered/Not Resolved]
  - Motor dysfunction [Not Recovered/Not Resolved]
  - Hypoaesthesia [Recovered/Resolved]

NARRATIVE: CASE EVENT DATE: 2019
